FAERS Safety Report 8781298 (Version 2)
Quarter: 2012Q4

REPORT INFORMATION
  Report Type: 
  Country: US (occurrence: US)
  Receive Date: 20120913
  Receipt Date: 20121226
  Transmission Date: 20130627
  Serious: Yes (Hospitalization)
  Sender: FDA-Public Use
  Company Number: US-BAYER-2012-095079

PATIENT
  Age: 38 Year
  Sex: Female

DRUGS (8)
  1. YAZ [Suspect]
     Indication: PREMENSTRUAL SYNDROME
     Dosage: UNK
     Dates: start: 200705, end: 200811
  2. OCELLA [Suspect]
     Indication: PREMENSTRUAL SYNDROME
     Dosage: UNK
     Dates: start: 200812, end: 201003
  3. NEXIUM [Concomitant]
     Dosage: 20 mg, UNK
  4. HYOSCYAMINE [Concomitant]
     Dosage: 0.125 mg, UNK
  5. PERCOCET [Concomitant]
  6. ADVIL [Concomitant]
  7. DEMEROL [Concomitant]
  8. PHENERGAN [Concomitant]

REACTIONS (15)
  - Cholecystectomy [None]
  - Pancreatitis [None]
  - Cholecystitis chronic [None]
  - Scar [None]
  - Injury [None]
  - Abdominal distension [None]
  - Flatulence [None]
  - Dyspepsia [None]
  - Constipation [None]
  - Diarrhoea [None]
  - Depression [None]
  - Anxiety [None]
  - Stress [None]
  - Off label use [None]
  - Mental disorder [None]
